FAERS Safety Report 9688927 (Version 1)
Quarter: 2013Q4

REPORT INFORMATION
  Report Type: Spontaneous
  Country: IT (occurrence: None)
  Receive Date: 20131112
  Receipt Date: 20131112
  Transmission Date: 20140711
  Serious: Yes (Other)
  Sender: FDA-Public Use
  Company Number: AUR-APL-2013-09392

PATIENT
  Sex: Female

DRUGS (1)
  1. MELOXICAM (MELOXICAM) [Suspect]
     Indication: PRODUCT USED FOR UNKNOWN INDICATION

REACTIONS (6)
  - Oedema peripheral [None]
  - Oedema peripheral [None]
  - Oedema genital [None]
  - Generalised oedema [None]
  - Face oedema [None]
  - Breast oedema [None]
